FAERS Safety Report 5310797-4 (Version None)
Quarter: 2007Q2

REPORT INFORMATION
  Report Type: 
  Country: None (occurrence: None)
  Receive Date: 20070428
  Receipt Date: 20070416
  Transmission Date: 20071010
  Serious: Yes (Hospitalization)
  Sender: FDA-Public Use
  Company Number: GB-PFIZER INC-2007016342

PATIENT
  Sex: Female

DRUGS (2)
  1. ZYVOX [Suspect]
  2. AMITRIPTYLINE HCL [Interacting]

REACTIONS (3)
  - CEREBROVASCULAR ACCIDENT [None]
  - DRUG INTERACTION [None]
  - SEROTONIN SYNDROME [None]
